FAERS Safety Report 20818423 (Version 2)
Quarter: 2022Q2

REPORT INFORMATION
  Report Type: Spontaneous
  Country: US (occurrence: US)
  Receive Date: 20220512
  Receipt Date: 20220517
  Transmission Date: 20220721
  Serious: No
  Sender: FDA-Public Use
  Company Number: US-TORRENT-00011853

PATIENT
  Age: 69 Year
  Sex: Male

DRUGS (2)
  1. CARBAMAZEPINE [Suspect]
     Active Substance: CARBAMAZEPINE
     Indication: Epilepsy
     Dosage: 100 MG AT 3 PM EVERY DAY
  2. ASPIRIN [Concomitant]
     Active Substance: ASPIRIN
     Indication: Product used for unknown indication
     Dosage: UNKNOWN

REACTIONS (4)
  - Product dose omission issue [Unknown]
  - Somnolence [Unknown]
  - Inappropriate schedule of product administration [Unknown]
  - Mental disorder [Unknown]
